FAERS Safety Report 4369615-3 (Version None)
Quarter: 2004Q2

REPORT INFORMATION
  Report Type: 
  Country: None (occurrence: None)
  Receive Date: 20040525
  Receipt Date: 20040511
  Transmission Date: 20050107
  Serious: Yes (Hospitalization)
  Sender: FDA-Public Use
  Company Number: SP00273

PATIENT
  Age: 6 Year
  Sex: Male
  Weight: 40 kg

DRUGS (6)
  1. COLAZAL [Suspect]
     Indication: COLITIS
     Dosage: SEE IMAGE
     Route: 048
     Dates: start: 20021101, end: 20031101
  2. COLAZAL [Suspect]
     Indication: COLITIS
     Dosage: SEE IMAGE
     Route: 048
     Dates: start: 20031101
  3. FLAGYL [Concomitant]
  4. DEPAKOTE [Concomitant]
  5. TRILEPTAL [Concomitant]
  6. PREDNISONE [Concomitant]

REACTIONS (3)
  - BLOOD TRIGLYCERIDES INCREASED [None]
  - FOOD AVERSION [None]
  - PANCREATITIS [None]
